FAERS Safety Report 17245890 (Version 1)
Quarter: 2020Q1

REPORT INFORMATION
  Report Type: Report from Study
  Country: None (occurrence: DE)
  Receive Date: 20200108
  Receipt Date: 20200108
  Transmission Date: 20200409
  Serious: Yes (Death, Hospitalization)
  Sender: FDA-Public Use
  Company Number: DE-ABBVIE-20K-062-3222981-00

PATIENT
  Sex: Male

DRUGS (1)
  1. DUODOPA [Suspect]
     Active Substance: CARBIDOPA\LEVODOPA
     Indication: PARKINSON^S DISEASE
     Dosage: MD 5.0ML CRD 5.0ML/H; CRN 2.2ML/H ED2.0ML?STRENGTH (CMP): 20 MG/ML 5 MG/ML
     Route: 050
     Dates: start: 20180418

REACTIONS (2)
  - Multiple organ dysfunction syndrome [Fatal]
  - General physical health deterioration [Not Recovered/Not Resolved]
